FAERS Safety Report 14782736 (Version 1)
Quarter: 2018Q2

REPORT INFORMATION
  Report Type: Spontaneous
  Country: FR (occurrence: FR)
  Receive Date: 20180420
  Receipt Date: 20180420
  Transmission Date: 20180711
  Serious: Yes (Other)
  Sender: FDA-Public Use
  Company Number: FR-MERCK KGAA-2046129

PATIENT
  Age: 56 Year
  Sex: Female

DRUGS (1)
  1. NOVOTHYROX [Suspect]
     Active Substance: LEVOTHYROXINE SODIUM
     Indication: THYROID DISORDER

REACTIONS (30)
  - Anger [None]
  - Feeling abnormal [None]
  - Asthenia [None]
  - Low density lipoprotein increased [None]
  - Libido decreased [None]
  - Arthralgia [None]
  - High density lipoprotein decreased [None]
  - Hot flush [None]
  - Aphasia [None]
  - Feeling cold [None]
  - Depressed mood [None]
  - Asocial behaviour [None]
  - Nausea [None]
  - Fall [None]
  - Apathy [None]
  - Insomnia [None]
  - Decreased interest [None]
  - Pain [None]
  - Headache [None]
  - Alopecia [None]
  - Loss of employment [None]
  - Balance disorder [None]
  - Weight increased [None]
  - Hyperacusis [None]
  - Hyperhidrosis [None]
  - Fatigue [None]
  - Vertigo [None]
  - Chills [None]
  - Aggression [None]
  - Muscle spasms [None]

NARRATIVE: CASE EVENT DATE: 20170412
